FAERS Safety Report 10232303 (Version 1)
Quarter: 2014Q2

REPORT INFORMATION
  Report Type: Spontaneous
  Country: US (occurrence: US)
  Receive Date: 20140612
  Receipt Date: 20140612
  Transmission Date: 20141212
  Serious: No
  Sender: FDA-Public Use
  Company Number: US-009507513-1405USA013983

PATIENT
  Age: 22 Year
  Sex: Female
  Weight: 65.76 kg

DRUGS (2)
  1. NEXPLANON [Suspect]
     Indication: CONTRACEPTION
     Dosage: UNK
     Dates: start: 20131113
  2. VITAMINS (UNSPECIFIED) [Concomitant]

REACTIONS (3)
  - Vaginal haemorrhage [Recovered/Resolved]
  - Weight increased [Not Recovered/Not Resolved]
  - Device breakage [Unknown]
